FAERS Safety Report 9204267 (Version 1)
Quarter: 2013Q2

REPORT INFORMATION
  Report Type: Spontaneous
  Country: US (occurrence: US)
  Receive Date: 20130402
  Receipt Date: 20130402
  Transmission Date: 20140414
  Serious: Yes (Hospitalization)
  Sender: FDA-Public Use
  Company Number: US-ELI_LILLY_AND_COMPANY-US201303007759

PATIENT
  Sex: Female

DRUGS (7)
  1. HUMATROPE [Suspect]
     Indication: HYPOPITUITARISM
     Dosage: 0.3 MG, UNK
  2. HYDROCORTISONE [Concomitant]
  3. SIMVASTAN [Concomitant]
  4. POTASSIUM CHLORIDE [Concomitant]
  5. CYMBALTA [Concomitant]
  6. MODAFINIL [Concomitant]
  7. PRAMIPEXOLE [Concomitant]

REACTIONS (2)
  - Ankle fracture [Unknown]
  - Wound infection [Unknown]
